FAERS Safety Report 6004345-3 (Version None)
Quarter: 2008Q4

REPORT INFORMATION
  Report Type: 
  Country: None (occurrence: None)
  Receive Date: 20081216
  Receipt Date: 20081202
  Transmission Date: 20090506
  Serious: Yes (Death, Other)
  Sender: FDA-Public Use
  Company Number: AT-BAYER-AT-2006-033519

PATIENT
  Age: 69 Year
  Sex: Male

DRUGS (7)
  1. CAMPATH [Suspect]
     Indication: CHRONIC LYMPHOCYTIC LEUKAEMIA
     Dosage: UNIT DOSE: 3 MG
     Dates: start: 20020412, end: 20020412
  2. CAMPATH [Suspect]
     Dosage: UNIT DOSE: 10 MG
     Dates: start: 20020413, end: 20020413
  3. CAMPATH [Suspect]
     Dosage: UNIT DOSE: 30 MG
     Dates: start: 20020414, end: 20020414
  4. CAMPATH [Suspect]
     Dosage: UNIT DOSE: 30 MG
     Dates: start: 20020415
  5. CAMPATH [Suspect]
     Dates: start: 20020701
  6. VALACYCLOVIR HCL [Concomitant]
     Indication: INFECTION PROPHYLAXIS
     Route: 065
  7. SULFAMETHOXAZOLE AND TRIMETHOPRIM [Concomitant]
     Indication: INFECTION PROPHYLAXIS
     Route: 065

REACTIONS (4)
  - CHRONIC LYMPHOCYTIC LEUKAEMIA [None]
  - MALIGNANT NEOPLASM PROGRESSION [None]
  - PULMONARY TUBERCULOSIS [None]
  - SQUAMOUS CELL CARCINOMA [None]
